FAERS Safety Report 8890855 (Version 2)
Quarter: 2012Q4

REPORT INFORMATION
  Report Type: 
  Country: GB (occurrence: GB)
  Receive Date: 20121107
  Receipt Date: 20121226
  Transmission Date: 20130627
  Serious: Yes (Hospitalization, Other)
  Sender: FDA-Public Use
  Company Number: PHFR2012GB005311

PATIENT
  Age: 64 Year
  Sex: Male

DRUGS (2)
  1. CLOZARIL [Suspect]
     Indication: SCHIZOPHRENIA
     Dosage: 200 mg, UNK
     Route: 048
     Dates: start: 1992
  2. CLOZARIL [Suspect]
     Dosage: 200 mg, UNK
     Route: 048
     Dates: start: 20010701, end: 20121003

REACTIONS (7)
  - Lymphoma [Not Recovered/Not Resolved]
  - Splenomegaly [Not Recovered/Not Resolved]
  - Lymphadenopathy [Not Recovered/Not Resolved]
  - Jaundice [Not Recovered/Not Resolved]
  - Constipation [Unknown]
  - Bile duct obstruction [Unknown]
  - Hepatic function abnormal [Unknown]
